FAERS Safety Report 6060896-7 (Version None)
Quarter: 2009Q1

REPORT INFORMATION
  Report Type: 
  Country: None (occurrence: None)
  Receive Date: 20090202
  Receipt Date: 20090121
  Transmission Date: 20090719
  Serious: Yes (Other)
  Sender: FDA-Public Use
  Company Number: US-BAYER-200911457NA

PATIENT
  Age: 28 Year
  Sex: Female
  Weight: 137 kg

DRUGS (2)
  1. MIRENA [Suspect]
     Indication: CONTRACEPTION
     Route: 015
     Dates: start: 20061114, end: 20090106
  2. RHINOCORT [Concomitant]
     Indication: MULTIPLE ALLERGIES
     Route: 045

REACTIONS (3)
  - ABDOMINAL PAIN LOWER [None]
  - ANTEPARTUM HAEMORRHAGE [None]
  - PREGNANCY WITH CONTRACEPTIVE DEVICE [None]
